FAERS Safety Report 8806086 (Version 2)
Quarter: 2012Q4

REPORT INFORMATION
  Report Type: 
  Country: DE (occurrence: JP)
  Receive Date: 20120925
  Receipt Date: 20121112
  Transmission Date: 20130627
  Serious: Yes (Other)
  Sender: FDA-Public Use
  Company Number: JP-BRISTOL-MYERS SQUIBB COMPANY-16970477

PATIENT
  Age: 67 Year
  Sex: Female

DRUGS (8)
  1. METGLUCO [Suspect]
     Dosage: 07Feb12:07Feb12:250mg
07Aug12:11Sep12:1500mg (35D)
     Route: 048
     Dates: start: 20120207, end: 20120911
  2. GLIMICRON [Suspect]
     Route: 048
     Dates: start: 20110310, end: 20120110
  3. SITAGLIPTIN PHOSPHATE [Concomitant]
     Route: 048
     Dates: start: 20110224, end: 20120911
  4. NIFEDIPINE [Concomitant]
     Route: 048
     Dates: start: 20100113, end: 20120911
  5. CANDESARTAN CILEXETIL + HCTZ [Concomitant]
     Route: 048
     Dates: start: 20100817, end: 20120911
  6. ATORVASTATIN CALCIUM [Concomitant]
     Route: 048
     Dates: start: 20120110, end: 20120911
  7. RABEPRAZOLE SODIUM [Concomitant]
     Route: 048
     Dates: start: 20120306, end: 20120911
  8. URSODEOXYCHOLIC ACID [Concomitant]
     Route: 048
     Dates: start: 20120911, end: 20120911

REACTIONS (1)
  - Liver disorder [Unknown]
